FAERS Safety Report 7076345-6 (Version None)
Quarter: 2010Q4

REPORT INFORMATION
  Report Type: 
  Country: None (occurrence: None)
  Receive Date: 20101005
  Receipt Date: 20100921
  Transmission Date: 20110411
  Serious: Yes (Death)
  Sender: FDA-Public Use
  Company Number: US-145088

PATIENT

DRUGS (1)
  1. WINRHO SDF LIQUID [Suspect]

REACTIONS (1)
  - INTRAVASCULAR HAEMOLYSIS [None]
